FAERS Safety Report 5917198-6 (Version None)
Quarter: 2008Q4

REPORT INFORMATION
  Report Type: 
  Country: None (occurrence: None)
  Receive Date: 20081014
  Receipt Date: 20081009
  Transmission Date: 20090506
  Serious: Yes (Other)
  Sender: FDA-Public Use
  Company Number: GR-BRISTOL-MYERS SQUIBB COMPANY-14363055

PATIENT
  Age: 50 Year
  Sex: Male

DRUGS (2)
  1. BARACLUDE [Suspect]
  2. ZOFENOPRIL [Concomitant]
     Indication: HYPERTENSION

REACTIONS (1)
  - EPILEPSY [None]
